FAERS Safety Report 11054921 (Version 1)
Quarter: 2015Q2

REPORT INFORMATION
  Report Type: Spontaneous
  Country: US (occurrence: None)
  Receive Date: 20150421
  Receipt Date: 20150421
  Transmission Date: 20150821
  Serious: Yes (Life-Threatening, Hospitalization, Disabling)
  Sender: FDA-Public Use
  Company Number: None

PATIENT
  Age: 86 Year
  Sex: Female
  Weight: 62.14 kg

DRUGS (15)
  1. FIBER [Concomitant]
     Active Substance: PSYLLIUM HUSK
  2. COLON HEALTH [Concomitant]
  3. PRADAXA [Suspect]
     Active Substance: DABIGATRAN ETEXILATE MESYLATE
     Indication: ATRIAL FIBRILLATION
     Route: 048
     Dates: start: 20110916, end: 20150322
  4. PRILOSEC [Concomitant]
     Active Substance: OMEPRAZOLE MAGNESIUM
  5. JONESEMIDE [Concomitant]
  6. LESCAL [Concomitant]
  7. TRAZODONE [Concomitant]
     Active Substance: TRAZODONE HYDROCHLORIDE
  8. VITAMIN B12 [Concomitant]
     Active Substance: CYANOCOBALAMIN
  9. BISOPROLOL [Concomitant]
     Active Substance: BISOPROLOL
  10. OCUVITE [Concomitant]
     Active Substance: VITAMINS
  11. CALTRATE [Concomitant]
     Active Substance: CALCIUM CARBONATE
  12. COLACE [Concomitant]
     Active Substance: DOCUSATE SODIUM
  13. K [Concomitant]
  14. CYMBALTA [Concomitant]
     Active Substance: DULOXETINE HYDROCHLORIDE
  15. LEVOXA [Concomitant]
     Active Substance: LEVOFLOXACIN

REACTIONS (4)
  - Cardiac failure congestive [None]
  - Haemoglobin decreased [None]
  - Weight increased [None]
  - Gastrointestinal haemorrhage [None]

NARRATIVE: CASE EVENT DATE: 20150322
